FAERS Safety Report 8431232-3 (Version None)
Quarter: 2012Q2

REPORT INFORMATION
  Report Type: 
  Country: None (occurrence: None)
  Receive Date: 20120613
  Receipt Date: 20120601
  Transmission Date: 20120825
  Serious: Yes (Other)
  Sender: FDA-Public Use
  Company Number: US-BRISTOL-MYERS SQUIBB COMPANY-16655904

PATIENT
  Sex: Male

DRUGS (2)
  1. ABILIFY [Suspect]
  2. NAVANE [Suspect]

REACTIONS (8)
  - EYE SWELLING [None]
  - WEIGHT DECREASED [None]
  - ANURIA [None]
  - PALPITATIONS [None]
  - DIABETES MELLITUS [None]
  - CATARACT [None]
  - SLEEP DISORDER [None]
  - GENERALISED ERYTHEMA [None]
